FAERS Safety Report 10196803 (Version 2)
Quarter: 2014Q2

REPORT INFORMATION
  Report Type: Spontaneous
  Country: GB (occurrence: None)
  Receive Date: 20140522
  Receipt Date: 20140604
  Transmission Date: 20141212
  Serious: Yes (Other)
  Sender: FDA-Public Use
  Company Number: FK201401843

PATIENT
  Age: 56 Year
  Sex: Female
  Weight: 81 kg

DRUGS (6)
  1. ANASTROZOLE (MANUFACTURER UNKNOWN) (ANASTROZOLE) (ANASTROZOLE) [Suspect]
     Indication: BREAST CANCER METASTATIC
     Route: 048
     Dates: start: 20140107
  2. ASPIRIN (ACETYLSALICYLIC ACID) [Concomitant]
  3. INSULIN ASPART (INSULIN ASPART) [Concomitant]
  4. LEVEMIR (INSULIN DETEMIR) [Concomitant]
  5. METFORMIN HYDROCHLORIDE (METFORMIN HYDROCHLORIDE) [Concomitant]
  6. THIAMINE HYDROCHLORIDE (THIAMINE HYDROCHLORIDE) [Concomitant]

REACTIONS (13)
  - Arthralgia [None]
  - Carpal tunnel syndrome [None]
  - Condition aggravated [None]
  - Hot flush [None]
  - Night sweats [None]
  - Hypoaesthesia [None]
  - Pain in extremity [None]
  - Plantar fasciitis [None]
  - Sleep disorder [None]
  - Musculoskeletal pain [None]
  - Gait disturbance [None]
  - Fatigue [None]
  - Insomnia [None]
